FAERS Safety Report 4356672-3 (Version None)
Quarter: 2004Q2

REPORT INFORMATION
  Report Type: 
  Country: None (occurrence: None)
  Receive Date: 20040506
  Receipt Date: 20040505
  Transmission Date: 20050107
  Serious: Yes (Hospitalization)
  Sender: FDA-Public Use
  Company Number: 402625410

PATIENT
  Age: 66 Year
  Sex: Male

DRUGS (4)
  1. AK-FLUOR, 10%, AKORN [Suspect]
     Indication: ANGIOGRAM
     Dosage: 1 DF
     Dates: start: 20040427, end: 20040427
  2. BETA BLOCKING AGENTS (NO INGREDIENTS/SUBTANCES) [Suspect]
  3. MEDROL [Concomitant]
  4. CORTICOSTEROIDS [Concomitant]

REACTIONS (6)
  - ANAPHYLACTIC SHOCK [None]
  - CONVULSION [None]
  - EYELID OEDEMA [None]
  - FACE OEDEMA [None]
  - HYPOTENSION [None]
  - PRURITUS GENERALISED [None]
